FAERS Safety Report 11025431 (Version 1)
Quarter: 2015Q2

REPORT INFORMATION
  Report Type: Spontaneous
  Country: US (occurrence: None)
  Receive Date: 20150413
  Receipt Date: 20150413
  Transmission Date: 20150821
  Serious: Yes (Other)
  Sender: FDA-Public Use
  Company Number: None

PATIENT
  Age: 18 Year
  Sex: Female
  Weight: 61.6 kg

DRUGS (1)
  1. SODIUM FERRIC GLUCONATE COMPLEX. [Suspect]
     Active Substance: SODIUM FERRIC GLUCONATE COMPLEX
     Indication: IRON DEFICIENCY ANAEMIA
     Route: 042
     Dates: start: 20150113

REACTIONS (4)
  - Heart rate increased [None]
  - Musculoskeletal stiffness [None]
  - Chest pain [None]
  - Infusion related reaction [None]

NARRATIVE: CASE EVENT DATE: 20150113
